FAERS Safety Report 4646895-8 (Version None)
Quarter: 2005Q2

REPORT INFORMATION
  Report Type: 
  Country: None (occurrence: None)
  Receive Date: 20050331
  Receipt Date: 20050216
  Transmission Date: 20051028
  Serious: No
  Sender: FDA-Public Use
  Company Number: 05P-163-0290931-00

PATIENT
  Age: 64 Year
  Sex: Female
  Weight: 56.6996 kg

DRUGS (6)
  1. HUMIRA [Suspect]
     Indication: RHEUMATOID ARTHRITIS
     Dosage: 40 MG, 1 IN 2 WK, SUBCUTANEOUS
     Route: 058
     Dates: start: 20040501
  2. SULINDAC [Concomitant]
  3. LEVOTHYROXINE SODIUM [Concomitant]
  4. RALOXIFENE HYDROCHLORIDE [Concomitant]
  5. VITAMINS [Concomitant]
  6. SUPPLEMENTS [Concomitant]

REACTIONS (5)
  - COSTOCHONDRITIS [None]
  - INJECTION SITE NODULE [None]
  - PHARYNGOLARYNGEAL PAIN [None]
  - PLEURISY [None]
  - PROCEDURAL COMPLICATION [None]
